FAERS Safety Report 7941871-1 (Version None)
Quarter: 2011Q4

REPORT INFORMATION
  Report Type: 
  Country: None (occurrence: None)
  Receive Date: 20111128
  Receipt Date: 20111117
  Transmission Date: 20120403
  Serious: Yes (Hospitalization, Other)
  Sender: FDA-Public Use
  Company Number: US-BAYER-201029335NA

PATIENT
  Age: 17 Year
  Sex: Female
  Weight: 95 kg

DRUGS (26)
  1. DROSPIRENONE AND ETHINYL ESTRADIOL [Suspect]
     Indication: ACNE
  2. VERAPAMIL [Concomitant]
     Indication: CHEST PAIN
     Dosage: 240 MG, UNK
     Dates: start: 20070101
  3. METFORMIN HCL [Concomitant]
     Indication: OVARIAN CYST
     Dosage: 500 MG, UNK
     Dates: start: 20070101
  4. DROSPIRENONE AND ETHINYL ESTRADIOL [Suspect]
     Indication: MENSTRUAL CYCLE MANAGEMENT
     Dosage: UNK UNK, UNK
     Route: 048
     Dates: start: 20080901, end: 20081101
  5. TOPAMAX [Concomitant]
     Indication: MIGRAINE
     Dosage: 25 MG, QD
     Dates: start: 20070101, end: 20080101
  6. SYNTHROID [Concomitant]
     Indication: HYPOTHYROIDISM
     Dosage: UNK
     Dates: start: 20060101, end: 20070101
  7. GLUCOPHAGE [Concomitant]
     Indication: DIABETES MELLITUS
     Dosage: UNK
     Dates: start: 20060101
  8. YASMIN [Suspect]
     Indication: MENSTRUAL CYCLE MANAGEMENT
     Dosage: UNK UNK, UNK
     Route: 048
     Dates: start: 20060101, end: 20080601
  9. VERAPAMIL [Concomitant]
     Indication: HEART RATE IRREGULAR
  10. ASPIRIN [Concomitant]
  11. LOPRESSOR [Concomitant]
     Indication: HYPERTROPHIC CARDIOMYOPATHY
  12. METOPROLOL TARTRATE [Concomitant]
     Indication: HYPERTENSION
     Dosage: UNK
     Dates: start: 20070101
  13. YASMIN [Suspect]
     Indication: ACNE
  14. DROSPIRENONE AND ETHINYL ESTRADIOL [Suspect]
     Indication: ORAL CONTRACEPTION
  15. LOPRESSOR [Concomitant]
     Indication: HYPERTENSION
     Dosage: UNK
     Route: 048
     Dates: start: 20070101
  16. VERAPAMIL [Concomitant]
     Indication: HYPERTROPHIC CARDIOMYOPATHY
  17. MULTI-VITAMIN [Concomitant]
     Route: 048
  18. LEVOTHYROXINE SODIUM [Concomitant]
     Indication: HYPOTHYROIDISM
     Dosage: 88 MCG/24HR, UNK
     Dates: start: 20070101
  19. DROSPIRENONE AND ETHINYL ESTRADIOL [Suspect]
     Indication: OVARIAN CYST
  20. RANITIDINE HCL [Concomitant]
     Indication: GASTROOESOPHAGEAL REFLUX DISEASE
     Dosage: 150 MG, UNK
     Dates: start: 20070101
  21. ACETAMINOPHEN [Concomitant]
  22. ZANTAC [Concomitant]
     Indication: GASTROOESOPHAGEAL REFLUX DISEASE
     Dosage: UNK
     Dates: start: 20070101
  23. YASMIN [Suspect]
     Indication: ORAL CONTRACEPTION
  24. YASMIN [Suspect]
     Indication: OVARIAN CYST
  25. VERAPAMIL [Concomitant]
     Indication: HYPERTENSION
  26. METFORMIN HCL [Concomitant]
     Indication: DIABETES MELLITUS

REACTIONS (2)
  - CHOLECYSTITIS CHRONIC [None]
  - CHOLECYSTECTOMY [None]
